FAERS Safety Report 8719667 (Version 11)
Quarter: 2013Q1

REPORT INFORMATION
  Report Type: Report from Study
  Country: IN (occurrence: IN)
  Receive Date: 20120813
  Receipt Date: 20130104
  Transmission Date: 20140127
  Serious: Yes (Life-Threatening, Hospitalization)
  Sender: FDA-Public Use
  Company Number: IN-NOVOPROD-357182

PATIENT
  Age: 65 Year
  Sex: Female
  Weight: 46.4 kg

DRUGS (2)
  1. LIRAGLUTIDE FLEXPEN [Suspect]
     Indication: TYPE 2 DIABETES MELLITUS
     Dosage: 1.8 MG, QD
     Route: 058
     Dates: start: 20110401, end: 20121009
  2. LIRAGLUTIDE FLEXPEN [Suspect]
     Dosage: 1.8 MG, QD
     Route: 058
     Dates: start: 20121018

REACTIONS (3)
  - Ischaemic stroke [Recovered/Resolved]
  - Carotid artery stenosis [Recovered/Resolved]
  - Carotid revascularisation [Recovered/Resolved]
